FAERS Safety Report 25749882 (Version 1)
Quarter: 2025Q3

REPORT INFORMATION
  Report Type: Spontaneous
  Country: GB (occurrence: GB)
  Receive Date: 20250902
  Receipt Date: 20250902
  Transmission Date: 20251021
  Serious: Yes (Hospitalization)
  Sender: ABBVIE
  Company Number: GB-ABBVIE-6440126

PATIENT
  Age: 57 Year
  Sex: Male
  Weight: 96 kg

DRUGS (1)
  1. SKYRIZI [Suspect]
     Active Substance: RISANKIZUMAB-RZAA
     Indication: Psoriasis
     Route: 058
     Dates: end: 202412

REACTIONS (4)
  - Atrial fibrillation [Unknown]
  - Pleural effusion [Unknown]
  - Pericardial effusion [Unknown]
  - Parvovirus infection [Unknown]

NARRATIVE: CASE EVENT DATE: 20241201
